FAERS Safety Report 6103778-4 (Version None)
Quarter: 2009Q1

REPORT INFORMATION
  Report Type: 
  Country: None (occurrence: None)
  Receive Date: 20090305
  Receipt Date: 20090224
  Transmission Date: 20090719
  Serious: Yes (Hospitalization)
  Sender: FDA-Public Use
  Company Number: JP-ASTRAZENECA-2009AP01624

PATIENT
  Age: 68 Year
  Sex: Male

DRUGS (12)
  1. SEROQUEL [Suspect]
     Route: 048
     Dates: start: 20090205, end: 20090221
  2. PARIET [Concomitant]
     Route: 048
     Dates: start: 20090205, end: 20090221
  3. WARFARIN SODIUM [Concomitant]
     Route: 048
     Dates: start: 20090205, end: 20090221
  4. LIVALO [Concomitant]
     Route: 048
     Dates: start: 20090205, end: 20090221
  5. NU-LOTAN [Concomitant]
     Route: 048
     Dates: start: 20090205, end: 20090221
  6. EURODIN [Concomitant]
     Route: 048
     Dates: start: 20090205, end: 20090221
  7. AMOBAN [Concomitant]
     Route: 048
     Dates: start: 20090205, end: 20090221
  8. MUCOSTA [Concomitant]
     Route: 048
     Dates: start: 20090205, end: 20090221
  9. PURSENNID [Concomitant]
     Route: 048
     Dates: start: 20090205, end: 20090221
  10. ALLOID G [Concomitant]
     Route: 048
     Dates: start: 20090205, end: 20090221
  11. ALLELOCK [Concomitant]
     Route: 048
     Dates: start: 20090205, end: 20090221
  12. SUCRALFATE [Concomitant]
     Route: 048
     Dates: start: 20090205, end: 20090221

REACTIONS (2)
  - DECREASED ACTIVITY [None]
  - EYELID DISORDER [None]
